FAERS Safety Report 24323948 (Version 1)
Quarter: 2024Q3

REPORT INFORMATION
  Report Type: Spontaneous
  Country: US (occurrence: None)
  Receive Date: 20240915
  Receipt Date: 20240915
  Transmission Date: 20241016
  Serious: Yes (Other)
  Sender: Public
  Company Number: None

PATIENT
  Age: 74 Year
  Sex: Male
  Weight: 100.8 kg

DRUGS (1)
  1. LUMASON [Suspect]
     Active Substance: SULFUR HEXAFLUORIDE
     Dosage: 2 ML INTRAVENOUS
     Route: 042

REACTIONS (4)
  - Chest pain [None]
  - Dyspnoea [None]
  - Paraesthesia [None]
  - Flushing [None]

NARRATIVE: CASE EVENT DATE: 20240915
